FAERS Safety Report 16216674 (Version 1)
Quarter: 2019Q2

REPORT INFORMATION
  Report Type: Report from Study
  Country: DE (occurrence: DE)
  Receive Date: 20190419
  Receipt Date: 20190419
  Transmission Date: 20190711
  Serious: Yes (Other)
  Sender: FDA-Public Use
  Company Number: PHHY2017DE092326

PATIENT
  Age: 77 Year
  Sex: Female
  Weight: 56 kg

DRUGS (12)
  1. TRAMETINIB [Suspect]
     Active Substance: TRAMETINIB
     Dosage: 1.5 MG, QD
     Route: 048
     Dates: start: 20170614
  2. TAFINLAR [Suspect]
     Active Substance: DABRAFENIB MESYLATE
     Dosage: 100 MG, BID
     Route: 048
     Dates: start: 20170614
  3. TRAMETINIB [Suspect]
     Active Substance: TRAMETINIB
     Indication: METASTATIC MALIGNANT MELANOMA
     Dosage: 2 MG, QD
     Route: 048
     Dates: start: 20170318, end: 20170613
  4. DELIX [Concomitant]
     Indication: HYPERTENSION
     Dosage: 5 MG, QD
     Route: 048
     Dates: start: 20160219
  5. AMLODIPINE [Concomitant]
     Active Substance: AMLODIPINE BESYLATE
     Indication: HYPERTENSION
     Dosage: 10 MG, QD
     Route: 048
  6. METOHEXAL [Concomitant]
     Active Substance: METOPROLOL
     Indication: MITRAL VALVE INCOMPETENCE
     Dosage: 95 MG, BID
     Route: 048
  7. PANTOZOL [Concomitant]
     Active Substance: PANTOPRAZOLE SODIUM
     Indication: PRODUCT USED FOR UNKNOWN INDICATION
     Dosage: 20 MG, QD
     Route: 048
  8. TAFINLAR [Suspect]
     Active Substance: DABRAFENIB MESYLATE
     Indication: METASTATIC MALIGNANT MELANOMA
     Dosage: 150 MG, BID
     Route: 048
     Dates: start: 20170318, end: 20170613
  9. MCP [Concomitant]
     Active Substance: METOCLOPRAMIDE HYDROCHLORIDE
     Indication: PRODUCT USED FOR UNKNOWN INDICATION
     Dosage: 10 MG, TID
     Route: 048
     Dates: start: 20170512, end: 20170914
  10. DELIX PLUS [Concomitant]
     Active Substance: HYDROCHLOROTHIAZIDE\RAMIPRIL
     Indication: HYPERTENSION
     Dosage: 5 MG, QD
     Route: 048
     Dates: start: 20160219
  11. METOHEXAL [Concomitant]
     Active Substance: METOPROLOL
     Indication: HYPERTENSION
  12. METOCLOPRAMIDE. [Concomitant]
     Active Substance: METOCLOPRAMIDE
     Indication: NAUSEA
     Route: 065

REACTIONS (4)
  - Hypomagnesaemia [Recovered/Resolved]
  - Nausea [Recovering/Resolving]
  - Fatigue [Recovering/Resolving]
  - Vomiting [Recovering/Resolving]

NARRATIVE: CASE EVENT DATE: 20170512
